FAERS Safety Report 5627725-4 (Version None)
Quarter: 2008Q1

REPORT INFORMATION
  Report Type: 
  Country: None (occurrence: None)
  Receive Date: 20080215
  Receipt Date: 20080207
  Transmission Date: 20080703
  Serious: Yes (Other)
  Sender: FDA-Public Use
  Company Number: US-BAYER-200810581BCC

PATIENT
  Age: 76 Year
  Sex: Male
  Weight: 87 kg

DRUGS (5)
  1. ALEVE [Suspect]
     Indication: BACK PAIN
     Dosage: TOTAL DAILY DOSE: 880 MG  UNIT DOSE: 220 MG
     Route: 048
  2. DIOVAN [Concomitant]
  3. TERAZOSIN HCL [Concomitant]
  4. GENERIC BABY ASPIRIN [Concomitant]
  5. SIMVASTATIN [Concomitant]

REACTIONS (2)
  - URINARY RETENTION [None]
  - URINE FLOW DECREASED [None]
